FAERS Safety Report 4680767-8 (Version None)
Quarter: 2005Q2

REPORT INFORMATION
  Report Type: 
  Country: None (occurrence: None)
  Receive Date: 20050601
  Receipt Date: 20050601
  Transmission Date: 20051028
  Serious: Yes (Other)
  Sender: FDA-Public Use
  Company Number: None

PATIENT
  Age: 46 Year
  Sex: Female
  Weight: 58.9676 kg

DRUGS (1)
  1. LITHIUM SLOW RELEASE  TABS 300 MG ABLE LABORATORIES [Suspect]
     Indication: BIPOLAR DISORDER
     Dosage: 300 MG 1 AM./2 PM ORAL
     Route: 048
     Dates: start: 20040901, end: 20050531

REACTIONS (1)
  - ADVERSE DRUG REACTION [None]
